FAERS Safety Report 16978638 (Version 1)
Quarter: 2019Q4

REPORT INFORMATION
  Report Type: Spontaneous
  Country: FR (occurrence: FR)
  Receive Date: 20191031
  Receipt Date: 20191031
  Transmission Date: 20200122
  Serious: Yes (Hospitalization, Other)
  Sender: FDA-Public Use
  Company Number: FR-TEVA-2019-FR-1130772

PATIENT
  Age: 37 Year
  Sex: Female

DRUGS (1)
  1. COTRIMOXAZOLE [Suspect]
     Active Substance: SULFAMETHOXAZOLE\TRIMETHOPRIM
     Indication: UPPER RESPIRATORY TRACT INFECTION
     Dosage: 800 MG/160 MG
     Route: 048
     Dates: start: 20190504

REACTIONS (22)
  - Hypoacusis [Not Recovered/Not Resolved]
  - Product use in unapproved indication [Unknown]
  - Toxic skin eruption [Not Recovered/Not Resolved]
  - Skin exfoliation [Unknown]
  - Angioedema [Recovered/Resolved]
  - Fatigue [Not Recovered/Not Resolved]
  - White blood cell disorder [Unknown]
  - Decreased activity [Unknown]
  - Acute kidney injury [Not Recovered/Not Resolved]
  - Visual impairment [Not Recovered/Not Resolved]
  - Drug hypersensitivity [Unknown]
  - Swelling [Unknown]
  - Generalised oedema [Unknown]
  - Alopecia [Not Recovered/Not Resolved]
  - Nail disorder [Not Recovered/Not Resolved]
  - Memory impairment [Not Recovered/Not Resolved]
  - Rash scarlatiniform [Not Recovered/Not Resolved]
  - Eye pain [Not Recovered/Not Resolved]
  - Hallucination [Unknown]
  - Respiratory distress [Recovered/Resolved]
  - Vulvovaginal pruritus [Recovered/Resolved]
  - Vomiting [Recovered/Resolved]

NARRATIVE: CASE EVENT DATE: 2019
